FAERS Safety Report 20598788 (Version 1)
Quarter: 2022Q1

REPORT INFORMATION
  Report Type: Report from Study
  Country: FR (occurrence: FR)
  Receive Date: 20220315
  Receipt Date: 20220315
  Transmission Date: 20220423
  Serious: Yes (Hospitalization, Other)
  Sender: FDA-Public Use
  Company Number: FR-BRISTOL-MYERS SQUIBB COMPANY-BMS-2022-037724

PATIENT
  Age: 75 Year
  Sex: Male
  Weight: 95 kg

DRUGS (9)
  1. NIVOLUMAB [Suspect]
     Active Substance: NIVOLUMAB
     Indication: Non-small cell lung cancer
     Dosage: 240 MILLIGRAM, Q2WK
     Route: 065
     Dates: start: 20220223
  2. RAMIPRIL [Concomitant]
     Active Substance: RAMIPRIL
     Indication: Hypertension
     Dosage: 10 MILLIGRAM, QD
     Route: 048
  3. ALDACTONE [Concomitant]
     Active Substance: SPIRONOLACTONE
     Indication: Hypertension
     Dosage: 25 MILLIGRAM, QD
     Route: 048
     Dates: end: 20220228
  4. OXYCONTIN [Concomitant]
     Active Substance: OXYCODONE HYDROCHLORIDE
     Indication: Tumour pain
     Dosage: 10 MILLIGRAM, BID
     Route: 048
     Dates: start: 20220214
  5. OXYCODONE HYDROCHLORIDE [Concomitant]
     Active Substance: OXYCODONE HYDROCHLORIDE
     Indication: Tumour pain
     Dosage: 5 MILLIGRAM, PRN
     Route: 048
     Dates: start: 20220214
  6. PREDNISOLONE [Concomitant]
     Active Substance: PREDNISOLONE
     Indication: Brain oedema
     Dosage: 60 MILLIGRAM, QD
     Route: 048
     Dates: start: 20211208
  7. ETIFOXINE [Concomitant]
     Active Substance: ETIFOXINE
     Indication: Anxiety
     Dosage: UNK, BID
     Route: 048
     Dates: start: 20220228
  8. ANDRO [Concomitant]
     Indication: Product used for unknown indication
     Dosage: 5S/22 MG/DAY
     Route: 048
     Dates: start: 20220228
  9. NASACORT [Concomitant]
     Active Substance: TRIAMCINOLONE ACETONIDE
     Indication: Product used for unknown indication
     Dosage: 5SMG, BID
     Route: 045
     Dates: start: 20220228

REACTIONS (5)
  - Malaise [Recovered/Resolved with Sequelae]
  - Loss of consciousness [Unknown]
  - Nausea [Unknown]
  - Somnolence [Unknown]
  - Vomiting [Unknown]

NARRATIVE: CASE EVENT DATE: 20220224
